FAERS Safety Report 8601758-8 (Version None)
Quarter: 2012Q3

REPORT INFORMATION
  Report Type: 
  Country: None (occurrence: None)
  Receive Date: 20120817
  Receipt Date: 20120529
  Transmission Date: 20120928
  Serious: Yes (Other)
  Sender: FDA-Public Use
  Company Number: US-BRISTOL-MYERS SQUIBB COMPANY-16456303

PATIENT
  Age: 78 Year
  Sex: Male

DRUGS (4)
  1. FLUTICASONE PROPIONATE [Concomitant]
  2. ALLOPURINOL [Concomitant]
  3. LASIX [Concomitant]
     Dates: start: 20120301
  4. SPRYCEL [Suspect]

REACTIONS (4)
  - JOINT SWELLING [None]
  - DEPRESSION [None]
  - DIARRHOEA [None]
  - PULMONARY HYPERTENSION [None]
